FAERS Safety Report 5462461-9 (Version None)
Quarter: 2007Q3

REPORT INFORMATION
  Report Type: 
  Country: None (occurrence: None)
  Receive Date: 20070814
  Receipt Date: 20070227
  Transmission Date: 20080115
  Serious: Yes (Hospitalization)
  Sender: FDA-Public Use
  Company Number: 2007015504

PATIENT
  Sex: Female
  Weight: 77 kg

DRUGS (5)
  1. PREDNISONE TAB [Suspect]
     Dosage: ORAL
     Route: 048
     Dates: start: 20050802
  2. DAUNORUBICIN HYDROCHLORIDE [Suspect]
     Indication: ACUTE LYMPHOCYTIC LEUKAEMIA
     Dosage: INTRAVENOUS
     Route: 042
     Dates: start: 20050802
  3. ELSPAR [Suspect]
     Dosage: INTRAMUSCULAR
     Route: 030
     Dates: start: 20050802
  4. METHOTREXATE [Suspect]
     Dosage: INTRATHECAL
     Route: 037
     Dates: start: 20050802
  5. VINCRISTINE SULFATE [Suspect]
     Dosage: INTRAVENOUS
     Route: 042
     Dates: start: 20050802

REACTIONS (1)
  - PNEUMONIA [None]
